FAERS Safety Report 22251485 (Version 1)
Quarter: 2023Q2

REPORT INFORMATION
  Report Type: Spontaneous
  Country: CN (occurrence: CN)
  Receive Date: 20230425
  Receipt Date: 20230425
  Transmission Date: 20230722
  Serious: Yes (Other)
  Sender: FDA-Public Use
  Company Number: CN-PFIZER INC-PV202300073777

PATIENT
  Age: 14 Year
  Sex: Male
  Weight: 40.2 kg

DRUGS (1)
  1. MEDROL [Suspect]
     Active Substance: METHYLPREDNISOLONE
     Indication: Nephrotic syndrome
     Dosage: 8 MG, 1X/DAY
     Route: 048
     Dates: start: 20111116, end: 20230410

REACTIONS (1)
  - Growth retardation [Unknown]

NARRATIVE: CASE EVENT DATE: 20230401
